FAERS Safety Report 8120812-0 (Version None)
Quarter: 2012Q1

REPORT INFORMATION
  Report Type: 
  Country: None (occurrence: None)
  Receive Date: 20120207
  Receipt Date: 20120127
  Transmission Date: 20120608
  Serious: Yes (Disabling, Other)
  Sender: FDA-Public Use
  Company Number: GB-BRISTOL-MYERS SQUIBB COMPANY-16378846

PATIENT
  Age: 85 Year
  Sex: Female
  Weight: 57 kg

DRUGS (15)
  1. WARFARIN SODIUM [Suspect]
  2. FUROSEMIDE [Concomitant]
  3. LOSARTAN POTASSIUM [Concomitant]
  4. DIGOXIN [Concomitant]
  5. IBANDRONATE SODIUM [Concomitant]
  6. LACTULOSE [Concomitant]
  7. LANSOPRAZOLE [Concomitant]
  8. METFORMIN HCL [Suspect]
     Indication: TYPE 2 DIABETES MELLITUS
     Route: 048
     Dates: start: 20111024, end: 20111205
  9. LEVOTHYROXINE SODIUM [Concomitant]
  10. NICORANDIL [Concomitant]
  11. CLOTRIMAZOLE [Concomitant]
  12. PANADEINE CO [Suspect]
  13. BISOPROLOL [Concomitant]
  14. ISOSORBIDE MONONITRATE [Concomitant]
  15. SPIRONOLACTONE [Concomitant]

REACTIONS (1)
  - VASCULITIS [None]
